FAERS Safety Report 12428722 (Version 1)
Quarter: 2016Q2

REPORT INFORMATION
  Report Type: Spontaneous
  Country: US (occurrence: None)
  Receive Date: 20160601
  Receipt Date: 20160601
  Transmission Date: 20160815
  Serious: Yes (Life-Threatening, Hospitalization, Disabling)
  Sender: FDA-Public Use
  Company Number: None

PATIENT
  Age: 68 Year
  Sex: Male
  Weight: 92.2 kg

DRUGS (1)
  1. DOCETAXEL. [Suspect]
     Active Substance: DOCETAXEL

REACTIONS (5)
  - Encephalopathy [None]
  - Colitis [None]
  - Septic shock [None]
  - Clostridial infection [None]
  - Ischaemia [None]

NARRATIVE: CASE EVENT DATE: 20160527
